FAERS Safety Report 18817913 (Version 2)
Quarter: 2021Q2

REPORT INFORMATION
  Report Type: Spontaneous
  Country: US (occurrence: US)
  Receive Date: 20210201
  Receipt Date: 20210520
  Transmission Date: 20210717
  Serious: No
  Sender: FDA-Public Use
  Company Number: US-PFIZER INC-2021064645

PATIENT
  Age: 69 Year
  Sex: Female

DRUGS (4)
  1. TETRACYCLINE HCL [Suspect]
     Active Substance: TETRACYCLINE HYDROCHLORIDE
     Dosage: UNK
  2. ERYTHROMYCIN. [Suspect]
     Active Substance: ERYTHROMYCIN
     Dosage: UNK
  3. ALENDRONATE [Suspect]
     Active Substance: ALENDRONATE SODIUM
     Dosage: UNK
  4. KEFLEX [Suspect]
     Active Substance: CEPHALEXIN
     Dosage: UNK

REACTIONS (2)
  - Dermatitis allergic [Unknown]
  - Drug hypersensitivity [Unknown]
